FAERS Safety Report 4310685-6 (Version None)
Quarter: 2004Q1

REPORT INFORMATION
  Report Type: 
  Country: None (occurrence: None)
  Receive Date: 20040301
  Receipt Date: 20031212
  Transmission Date: 20041129
  Serious: No
  Sender: FDA-Public Use
  Company Number: WAES 0312USA01444

PATIENT
  Sex: Male

DRUGS (3)
  1. ZETIA [Suspect]
     Indication: BLOOD CHOLESTEROL INCREASED
     Dosage: PO; 10 MG/DAILY/PO
     Route: 048
     Dates: start: 20020101
  2. ZETIA [Suspect]
     Indication: BLOOD CHOLESTEROL INCREASED
     Dosage: PO; 10 MG/DAILY/PO
     Route: 048
     Dates: start: 20031202
  3. COUMADIN [Concomitant]

REACTIONS (4)
  - BLOOD PRESSURE INCREASED [None]
  - DIZZINESS [None]
  - FEELING ABNORMAL [None]
  - NERVOUSNESS [None]
